FAERS Safety Report 25762033 (Version 1)
Quarter: 2025Q3

REPORT INFORMATION
  Report Type: Spontaneous
  Country: JP (occurrence: JP)
  Receive Date: 20250904
  Receipt Date: 20250904
  Transmission Date: 20251021
  Serious: Yes (Other)
  Sender: ROCHE
  Company Number: JP-CHUGAI-2025027807

PATIENT
  Age: 8 Decade
  Sex: Female

DRUGS (1)
  1. HEMLIBRA [Suspect]
     Active Substance: EMICIZUMAB-KXWH
     Indication: Acquired haemophilia
     Dosage: 75 MILLIGRAM, ONCE/WEEK
     Route: 058
     Dates: start: 20250710

REACTIONS (1)
  - Skin ulcer haemorrhage [Recovering/Resolving]
